FAERS Safety Report 17885307 (Version 1)
Quarter: 2020Q2

REPORT INFORMATION
  Report Type: Spontaneous
  Country: US (occurrence: US)
  Receive Date: 20200611
  Receipt Date: 20200611
  Transmission Date: 20200714
  Serious: Yes (Disabling, Other)
  Sender: FDA-Public Use
  Company Number: US-NOVOPROD-733121

PATIENT
  Sex: Female

DRUGS (2)
  1. LEVEMIR [Suspect]
     Active Substance: INSULIN DETEMIR
     Indication: PRODUCT USED FOR UNKNOWN INDICATION
     Dosage: ONCE AT NIGHT
     Route: 058
     Dates: start: 201612
  2. NOVOLOG [Suspect]
     Active Substance: INSULIN ASPART
     Indication: PRODUCT USED FOR UNKNOWN INDICATION
     Dosage: THREE TIMES A DAY
     Route: 065
     Dates: start: 201612

REACTIONS (14)
  - Insomnia [Unknown]
  - Dizziness [Unknown]
  - Glaucoma [Unknown]
  - Blindness [Unknown]
  - Pruritus [Unknown]
  - Disability [Unknown]
  - Vitamin D decreased [Unknown]
  - Memory impairment [Unknown]
  - Malaise [Unknown]
  - Blood potassium decreased [Unknown]
  - Blood glucose increased [Unknown]
  - Logorrhoea [Unknown]
  - Mood altered [Unknown]
  - Cataract [Unknown]
